FAERS Safety Report 7016625-3 (Version None)
Quarter: 2010Q3

REPORT INFORMATION
  Report Type: 
  Country: None (occurrence: None)
  Receive Date: 20100927
  Receipt Date: 20100920
  Transmission Date: 20110219
  Serious: Yes (Other)
  Sender: FDA-Public Use
  Company Number: B0675479A

PATIENT
  Age: 18 Year
  Sex: Male

DRUGS (2)
  1. CEFTAZIDIME [Suspect]
     Indication: VIRAL INFECTION
     Dosage: 10G PER DAY
     Route: 042
     Dates: start: 20100821, end: 20100827
  2. PIPERACILLIN AND TAZOBACTAM [Concomitant]
     Indication: VIRAL INFECTION
     Dosage: 12G PER DAY
     Route: 065
     Dates: start: 20100817, end: 20100820

REACTIONS (2)
  - NEUTROPENIA [None]
  - OFF LABEL USE [None]
